FAERS Safety Report 22114918 (Version 1)
Quarter: 2023Q1

REPORT INFORMATION
  Report Type: Spontaneous
  Country: TZ (occurrence: None)
  Receive Date: 20230319
  Receipt Date: 20230319
  Transmission Date: 20230417
  Serious: Yes (Life-Threatening, Hospitalization, Disabling)
  Sender: FDA-Public Use
  Company Number: None

PATIENT
  Age: 33 Year
  Sex: Male
  Weight: 86 kg

DRUGS (1)
  1. TRIAMCINOLONE ACETONIDE [Suspect]
     Active Substance: TRIAMCINOLONE ACETONIDE

REACTIONS (11)
  - Asthenia [None]
  - Gastric ulcer [None]
  - Mood altered [None]
  - Flatulence [None]
  - Heart rate increased [None]
  - Fatigue [None]
  - Stress [None]
  - Scar discomfort [None]
  - Injection site swelling [None]
  - Wrong technique in product usage process [None]
  - Eating disorder [None]

NARRATIVE: CASE EVENT DATE: 20230207
